FAERS Safety Report 23573432 (Version 6)
Quarter: 2024Q3

REPORT INFORMATION
  Report Type: Spontaneous
  Country: CA (occurrence: CA)
  Receive Date: 20240228
  Receipt Date: 20240731
  Transmission Date: 20241017
  Serious: Yes (Other)
  Sender: CELLTRION
  Company Number: CA-CELLTRION INC.-2024CA004898

PATIENT

DRUGS (10)
  1. INFLECTRA [Suspect]
     Active Substance: INFLIXIMAB-DYYB
     Indication: Colitis ulcerative
     Dosage: 5 MG/KG, INDUCTION DOSES AT WEEK 0, 2 AND 6, THEN Q 8 WEEKS
     Route: 042
     Dates: start: 20220609, end: 20220722
  2. INFLECTRA [Suspect]
     Active Substance: INFLIXIMAB-DYYB
     Dosage: 5 MG/KG, EVERY 6 WEEKS (ROUNDED TO THE NEAREST VIAL)
     Route: 042
     Dates: start: 20220916
  3. INFLECTRA [Suspect]
     Active Substance: INFLIXIMAB-DYYB
     Dosage: 5 MG/KG, EVERY 6 WEEKS (ROUNDED TO THE NEAREST VIAL)
     Route: 042
     Dates: start: 20240109
  4. INFLECTRA [Suspect]
     Active Substance: INFLIXIMAB-DYYB
     Dosage: 5 MG/KG (310 MG), EVERY 6 WEEKS
     Route: 042
     Dates: start: 20240220
  5. INFLECTRA [Suspect]
     Active Substance: INFLIXIMAB-DYYB
     Dosage: 10 MG/KG, REINDUCTION WEEKS 0,2,6 THEN Q 6 WEEKS (610 MG, WEEK 0 REINDUCTION DOSE)
     Route: 042
     Dates: start: 20240320
  6. INFLECTRA [Suspect]
     Active Substance: INFLIXIMAB-DYYB
     Dosage: 600 MG, AFTER 1 WEEK AND 6 DAYS, REINDUCTION
     Route: 042
     Dates: start: 20240402
  7. INFLECTRA [Suspect]
     Active Substance: INFLIXIMAB-DYYB
     Dosage: 10 MG/KG (590 MG), WEEK 6 (REINDUCTION WEEKS 0,2,6 THEN Q 6 WEEKS)
     Route: 042
     Dates: start: 20240430
  8. INFLECTRA [Suspect]
     Active Substance: INFLIXIMAB-DYYB
     Dosage: 10 MG/KG (590 MG), EVERY 6 WEEKS
     Route: 042
     Dates: start: 20240611
  9. PREDNISONE [Concomitant]
     Active Substance: PREDNISONE
     Dosage: UNK
  10. XELJANZ [Concomitant]
     Active Substance: TOFACITINIB CITRATE
     Dosage: 10 MG, 2X/DAY (TO BE REASSESSES)
     Route: 048
     Dates: start: 20211028

REACTIONS (3)
  - Condition aggravated [Recovering/Resolving]
  - Therapeutic product effect incomplete [Not Recovered/Not Resolved]
  - Mucous stools [Recovering/Resolving]

NARRATIVE: CASE EVENT DATE: 20240101
